FAERS Safety Report 18642830 (Version 1)
Quarter: 2020Q4

REPORT INFORMATION
  Report Type: Spontaneous
  Country: HU (occurrence: HU)
  Receive Date: 20201221
  Receipt Date: 20201221
  Transmission Date: 20210114
  Serious: Yes (Other)
  Sender: FDA-Public Use
  Company Number: HU-MYLANLABS-2020M1103034

PATIENT
  Sex: Female

DRUGS (16)
  1. EPIRUBICIN [Suspect]
     Active Substance: EPIRUBICIN
     Indication: BREAST CANCER METASTATIC
     Dosage: UNK(4 CYCLE)
     Route: 065
  2. TAMOXIFEN [Suspect]
     Active Substance: TAMOXIFEN
     Indication: BREAST CANCER METASTATIC
     Dosage: UNK
     Route: 065
  3. EPIRUBICIN [Suspect]
     Active Substance: EPIRUBICIN
     Indication: PIK3CA-ACTIVATED MUTATION
  4. IBANDRONATE [Suspect]
     Active Substance: IBANDRONATE SODIUM
     Indication: BREAST CANCER METASTATIC
     Dosage: UNK
     Route: 065
  5. IBANDRONATE [Suspect]
     Active Substance: IBANDRONATE SODIUM
     Indication: PIK3CA-ACTIVATED MUTATION
  6. FULVESTRANT. [Suspect]
     Active Substance: FULVESTRANT
     Indication: PIK3CA-ACTIVATED MUTATION
  7. EXEMESTANE. [Suspect]
     Active Substance: EXEMESTANE
     Indication: BREAST CANCER METASTATIC
     Dosage: UNK
     Route: 065
  8. PACLITAXEL. [Suspect]
     Active Substance: PACLITAXEL
     Indication: BREAST CANCER METASTATIC
  9. EVEROLIMUS. [Suspect]
     Active Substance: EVEROLIMUS
     Indication: BREAST CANCER METASTATIC
     Dosage: UNK
     Route: 065
  10. PACLITAXEL. [Suspect]
     Active Substance: PACLITAXEL
     Indication: PIK3CA-ACTIVATED MUTATION
     Dosage: UNK(4 CYCLE)
     Route: 065
  11. FULVESTRANT. [Suspect]
     Active Substance: FULVESTRANT
     Indication: BREAST CANCER METASTATIC
     Dosage: UNK
     Route: 065
  12. CYCLOPHOSPHAMIDE. [Suspect]
     Active Substance: CYCLOPHOSPHAMIDE
     Indication: BREAST CANCER METASTATIC
     Dosage: UNK(4 CYCLE)
     Route: 065
  13. TAMOXIFEN [Suspect]
     Active Substance: TAMOXIFEN
     Indication: PIK3CA-ACTIVATED MUTATION
  14. EVEROLIMUS. [Suspect]
     Active Substance: EVEROLIMUS
     Indication: PIK3CA-ACTIVATED MUTATION
  15. EXEMESTANE. [Suspect]
     Active Substance: EXEMESTANE
     Indication: PIK3CA-ACTIVATED MUTATION
  16. CYCLOPHOSPHAMIDE. [Suspect]
     Active Substance: CYCLOPHOSPHAMIDE
     Indication: PIK3CA-ACTIVATED MUTATION

REACTIONS (4)
  - Cardiomyopathy [Unknown]
  - Malignant neoplasm progression [Unknown]
  - Breast cancer metastatic [Unknown]
  - Metastases to bone [Unknown]
